FAERS Safety Report 7778346-9 (Version None)
Quarter: 2011Q3

REPORT INFORMATION
  Report Type: 
  Country: None (occurrence: None)
  Receive Date: 20110926
  Receipt Date: 20110913
  Transmission Date: 20111222
  Serious: Yes (Other)
  Sender: FDA-Public Use
  Company Number: US-BAYER-2011-086185

PATIENT
  Age: 19 Year
  Sex: Female

DRUGS (1)
  1. MIRENA [Suspect]
     Indication: CONTRACEPTION
     Dosage: 20 MCG/24HR, CONT
     Dates: start: 20090814

REACTIONS (5)
  - DYSPAREUNIA [None]
  - DEVICE DISLOCATION [None]
  - HYPOMENORRHOEA [None]
  - VAGINAL HAEMORRHAGE [None]
  - INFERTILITY [None]
